FAERS Safety Report 9227693 (Version 1)
Quarter: 2013Q1

REPORT INFORMATION
  Report Type: Spontaneous
  Country: US (occurrence: None)
  Receive Date: 20121012
  Receipt Date: 20121012
  Transmission Date: 20140127
  Serious: Yes (Other)
  Sender: FDA-Public Use
  Company Number: 100023627

PATIENT
  Age: 78 Year
  Sex: Male

DRUGS (9)
  1. LEXAPRO [Suspect]
     Indication: DEPRESSION
     Dosage: 20 MG, 1 IN 1 D
     Route: 048
     Dates: start: 2010, end: 20110831
  2. ADVAIR [Concomitant]
  3. METFORMIN [Concomitant]
  4. GLIPIZIDE [Concomitant]
  5. LEVOTHYROXINE [Concomitant]
  6. ZYPREXA [Concomitant]
  7. LORAZEPAM [Concomitant]
  8. DIGOXIN [Concomitant]
  9. TAZTIA [Concomitant]

REACTIONS (2)
  - Suicidal ideation [None]
  - Drug ineffective [None]
